FAERS Safety Report 20469779 (Version 1)
Quarter: 2022Q1

REPORT INFORMATION
  Report Type: Spontaneous
  Country: US (occurrence: None)
  Receive Date: 20220213
  Receipt Date: 20220213
  Transmission Date: 20220423
  Serious: Yes (Other)
  Sender: FDA-Public Use
  Company Number: None

PATIENT
  Age: 35 Year
  Sex: Male
  Weight: 81.45 kg

DRUGS (1)
  1. VEREGEN [Suspect]
     Active Substance: SINECATECHINS
     Indication: Skin papilloma
     Dosage: 1 DF DOSAGE FORM 3 TIMES A DAY TOPICAL?
     Route: 061
     Dates: start: 20220115

REACTIONS (3)
  - Application site pain [None]
  - Application site erythema [None]
  - Application site discharge [None]

NARRATIVE: CASE EVENT DATE: 20220201
